FAERS Safety Report 5048671-3 (Version None)
Quarter: 2006Q3

REPORT INFORMATION
  Report Type: 
  Country: None (occurrence: None)
  Receive Date: 20060705
  Receipt Date: 20060614
  Transmission Date: 20061208
  Serious: Yes (Hospitalization)
  Sender: FDA-Public Use
  Company Number: BE200606003660

PATIENT
  Age: 80 Year
  Sex: Male

DRUGS (8)
  1. DULOXETINE HYDROCHLORIDE (DULOXETINE HYDROCHLORIDE) CAPSULE [Suspect]
     Indication: DEPRESSION
     Dosage: 60 MG, DAILY (1/D), ORAL
     Route: 048
  2. MOTENS (LACIDIPINE) [Concomitant]
  3. PLAVIX [Concomitant]
  4. CRESTOR [Concomitant]
  5. MOXON (MOXONIDINE) [Concomitant]
  6. GLICLAZIDE (GLICLAZIDE) [Concomitant]
  7. PANTOPRAZOLE SODIUM [Concomitant]
  8. EFEXOR /USA/ (VENLAFAXINE HYDROCHLORIDE) [Concomitant]

REACTIONS (1)
  - SUBARACHNOID HAEMORRHAGE [None]
